FAERS Safety Report 17614436 (Version 1)
Quarter: 2020Q2

REPORT INFORMATION
  Report Type: Spontaneous
  Country: CA (occurrence: CA)
  Receive Date: 20200402
  Receipt Date: 20200402
  Transmission Date: 20200713
  Serious: No
  Sender: FDA-Public Use
  Company Number: CA-ALKEM LABORATORIES LIMITED-CA-ALKEM-2019-11006

PATIENT
  Age: 15 Year
  Sex: Male
  Weight: 127 kg

DRUGS (10)
  1. LAMOTRIGINE. [Suspect]
     Active Substance: LAMOTRIGINE
     Indication: AGGRESSION
     Dosage: 25 MILLIGRAM, BID
     Route: 065
  2. QUETIAPINE FUMARATE. [Suspect]
     Active Substance: QUETIAPINE FUMARATE
     Indication: AGGRESSION
     Dosage: 50 MILLIGRAM QHS
     Route: 065
  3. QUETIAPINE FUMARATE. [Suspect]
     Active Substance: QUETIAPINE FUMARATE
     Indication: BEHAVIOUR DISORDER
  4. SERTRALINE [Suspect]
     Active Substance: SERTRALINE HYDROCHLORIDE
     Indication: AGGRESSION
     Dosage: 100 MILLIGRAM QAM
     Route: 065
  5. LAMOTRIGINE. [Suspect]
     Active Substance: LAMOTRIGINE
     Indication: BEHAVIOUR DISORDER
  6. SERTRALINE [Suspect]
     Active Substance: SERTRALINE HYDROCHLORIDE
     Indication: BEHAVIOUR DISORDER
  7. CLONIDINE. [Suspect]
     Active Substance: CLONIDINE
     Indication: BEHAVIOUR DISORDER
  8. OLANZAPINE. [Suspect]
     Active Substance: OLANZAPINE
     Indication: BEHAVIOUR DISORDER
  9. OLANZAPINE. [Suspect]
     Active Substance: OLANZAPINE
     Indication: AGGRESSION
     Dosage: 10 MILLIGRAM, BID
     Route: 065
  10. CLONIDINE. [Suspect]
     Active Substance: CLONIDINE
     Indication: AGGRESSION
     Dosage: 0.1 MILLIGRAM, BID
     Route: 065

REACTIONS (2)
  - Obesity [Recovering/Resolving]
  - Blood prolactin increased [Recovered/Resolved]
